FAERS Safety Report 14165889 (Version 1)
Quarter: 2017Q4

REPORT INFORMATION
  Report Type: Spontaneous
  Country: US (occurrence: US)
  Receive Date: 20171107
  Receipt Date: 20171107
  Transmission Date: 20180321
  Serious: No
  Sender: FDA-Public Use
  Company Number: US-ASTRAZENECA-2017SF11524

PATIENT
  Age: 53 Year
  Sex: Male
  Weight: 92.5 kg

DRUGS (10)
  1. ATENOLOL. [Suspect]
     Active Substance: ATENOLOL
     Indication: HYPERTENSION
     Route: 048
     Dates: start: 2011
  2. BENICAR PLUS HCTZ [Concomitant]
     Indication: HYPERTENSION
     Dosage: 1/2 TABLET, DAILY
     Route: 048
     Dates: start: 2013
  3. BRILINTA [Suspect]
     Active Substance: TICAGRELOR
     Indication: STENT PLACEMENT
     Route: 048
     Dates: start: 2013, end: 2014
  4. BRILINTA [Suspect]
     Active Substance: TICAGRELOR
     Indication: STENT PLACEMENT
     Route: 048
     Dates: start: 2014, end: 20171031
  5. BRILINTA [Suspect]
     Active Substance: TICAGRELOR
     Indication: ATRIOVENTRICULAR BLOCK
     Route: 048
     Dates: start: 2014, end: 20171031
  6. BENICAR PLUS HCTZ [Concomitant]
     Indication: HYPERTENSION
     Route: 048
  7. OLMESARTAN PLUS HCTZ [Concomitant]
     Indication: HYPERTENSION
     Route: 048
     Dates: start: 2016
  8. OLMESARTAN PLUS HCTZ [Concomitant]
     Indication: HYPERTENSION
     Dosage: 1/2 TABLET, DAILY
     Route: 048
     Dates: start: 2013
  9. BRILINTA [Suspect]
     Active Substance: TICAGRELOR
     Indication: ATRIOVENTRICULAR BLOCK
     Route: 048
     Dates: start: 2013, end: 2014
  10. ASPIRIN. [Concomitant]
     Active Substance: ASPIRIN
     Indication: HYPERTENSION
     Route: 048
     Dates: start: 2011

REACTIONS (3)
  - Epistaxis [Unknown]
  - Product use issue [Unknown]
  - Off label use [Unknown]

NARRATIVE: CASE EVENT DATE: 2014
